FAERS Safety Report 7004653-3 (Version None)
Quarter: 2010Q3

REPORT INFORMATION
  Report Type: 
  Country: None (occurrence: None)
  Receive Date: 20100921
  Receipt Date: 20100910
  Transmission Date: 20110219
  Serious: Yes (Hospitalization)
  Sender: FDA-Public Use
  Company Number: US-US-EMD SERONO, INC.-7017408

PATIENT
  Sex: Male
  Weight: 79 kg

DRUGS (3)
  1. REBIF [Suspect]
     Indication: MULTIPLE SCLEROSIS
     Route: 058
     Dates: start: 20050801, end: 20100501
  2. REBIF [Suspect]
     Route: 058
     Dates: start: 20100101
  3. UNSPECIFIED MEDICATIONS [Concomitant]

REACTIONS (8)
  - BRONCHITIS VIRAL [None]
  - CLOSTRIDIAL INFECTION [None]
  - COMPUTERISED TOMOGRAM ABNORMAL [None]
  - INFLUENZA LIKE ILLNESS [None]
  - INJECTION SITE REACTION [None]
  - LARYNGITIS [None]
  - MEGACOLON [None]
  - PSEUDOMEMBRANOUS COLITIS [None]
